FAERS Safety Report 8856436 (Version 1)
Quarter: 2012Q4

REPORT INFORMATION
  Report Type: Spontaneous
  Country: CA (occurrence: None)
  Receive Date: 20121018
  Receipt Date: 20121018
  Transmission Date: 20130627
  Serious: Yes (Hospitalization)
  Sender: FDA-Public Use
  Company Number: DSU-2012-08127

PATIENT
  Age: 57 Year
  Sex: Female

DRUGS (2)
  1. OLMETEC [Suspect]
     Indication: DRUG USE FOR UNKNOWN INDICATION
     Dosage: Unknown , Per oral
     Route: 048
  2. CARBOLITHIUM [Suspect]
     Indication: DRUG USE FOR UNKNOWN INDICATION
     Dosage: 900 mg (300 mg, TID)

REACTIONS (3)
  - Antipsychotic drug level increased [None]
  - Confusional state [None]
  - Diarrhoea [None]
